FAERS Safety Report 7010855-2 (Version None)
Quarter: 2010Q3

REPORT INFORMATION
  Report Type: 
  Country: None (occurrence: None)
  Receive Date: 20100923
  Receipt Date: 20100923
  Transmission Date: 20110219
  Serious: Yes (Other)
  Sender: FDA-Public Use
  Company Number: None

PATIENT
  Age: 50 Year
  Sex: Male
  Weight: 113.3993 kg

DRUGS (1)
  1. OXYCONTIN [Suspect]
     Indication: ANALGESIC THERAPY
     Dosage: 40 MG 2 X DAY PO
     Route: 048
     Dates: start: 20100909, end: 20100922

REACTIONS (6)
  - ABDOMINAL DISCOMFORT [None]
  - DRUG EFFECT DECREASED [None]
  - HEADACHE [None]
  - NAUSEA [None]
  - PRODUCT FORMULATION ISSUE [None]
  - PRODUCT SOLUBILITY ABNORMAL [None]
